FAERS Safety Report 4695736-1 (Version None)
Quarter: 2005Q2

REPORT INFORMATION
  Report Type: 
  Country: None (occurrence: None)
  Receive Date: 20050621
  Receipt Date: 20050419
  Transmission Date: 20051028
  Serious: Yes (Hospitalization)
  Sender: FDA-Public Use
  Company Number: FI-NOVOPROD-243647

PATIENT
  Age: 62 Year
  Sex: Male
  Weight: 93 kg

DRUGS (5)
  1. INSULIN DETEMIR [Suspect]
     Indication: DIABETES MELLITUS NON-INSULIN-DEPENDENT
     Dosage: 74 IU, QD
     Route: 058
     Dates: start: 20041108
  2. NOVORAPID FLEXPEN [Suspect]
     Indication: DIABETES MELLITUS NON-INSULIN-DEPENDENT
     Dosage: 17 IU, QD
     Route: 058
     Dates: start: 20041108
  3. BISOPROLOL FUMARATE [Concomitant]
     Dosage: 7.5 MG, QD
     Route: 048
     Dates: start: 20021121
  4. PRIMASPAN [Concomitant]
     Dosage: 50 MG, QD
     Route: 048
     Dates: start: 20020508
  5. METFORMIN HCL [Concomitant]
     Dosage: 2000 MG, QD
     Route: 048
     Dates: start: 19980224

REACTIONS (1)
  - NEUROPATHIC ARTHROPATHY [None]
